FAERS Safety Report 15612629 (Version 2)
Quarter: 2018Q4

REPORT INFORMATION
  Report Type: Spontaneous
  Country: TN (occurrence: TN)
  Receive Date: 20181113
  Receipt Date: 20181121
  Transmission Date: 20190205
  Serious: Yes (Other)
  Sender: FDA-Public Use
  Company Number: TN-STRIDES ARCOLAB LIMITED-2018SP009634

PATIENT
  Age: 55 Year
  Sex: Female

DRUGS (1)
  1. IBUPROFEN. [Suspect]
     Active Substance: IBUPROFEN
     Indication: ANGINA PECTORIS
     Dosage: UNK
     Route: 065
     Dates: start: 20170215, end: 201702

REACTIONS (6)
  - Hypersensitivity vasculitis [Recovered/Resolved]
  - Mucosal erosion [Recovered/Resolved]
  - Purpura [Recovered/Resolved]
  - Drug hypersensitivity [Recovered/Resolved]
  - Skin lesion [Recovered/Resolved]
  - Pain [Recovered/Resolved]

NARRATIVE: CASE EVENT DATE: 20170217
